FAERS Safety Report 7530231-3 (Version None)
Quarter: 2011Q2

REPORT INFORMATION
  Report Type: 
  Country: None (occurrence: None)
  Receive Date: 20110607
  Receipt Date: 20110524
  Transmission Date: 20111010
  Serious: Yes (Hospitalization)
  Sender: FDA-Public Use
  Company Number: US-JNJFOC-20110600233

PATIENT
  Sex: Female
  Weight: 12.7 kg

DRUGS (7)
  1. PREVACID [Concomitant]
  2. IRON SULFATETHIAMIN COMPOUND TAB [Concomitant]
  3. FLUCONAZOLE [Concomitant]
  4. REMICADE [Suspect]
     Indication: INFLAMMATORY BOWEL DISEASE
     Route: 042
     Dates: start: 20090905, end: 20091015
  5. LEUKINE [Concomitant]
     Indication: INFLAMMATORY BOWEL DISEASE
  6. LEUKINE [Concomitant]
     Dates: start: 20100222, end: 20100710
  7. ALBUTEROL SULFATE AUTOHALER [Concomitant]

REACTIONS (1)
  - MEDICAL DEVICE COMPLICATION [None]
